FAERS Safety Report 9258772 (Version 6)
Quarter: 2014Q2

REPORT INFORMATION
  Report Type: Spontaneous
  Country: US (occurrence: US)
  Receive Date: 20130426
  Receipt Date: 20140529
  Transmission Date: 20141212
  Serious: Yes (Hospitalization, Other)
  Sender: FDA-Public Use
  Company Number: US-009507513-1304USA013897

PATIENT
  Sex: Female
  Weight: 63.95 kg

DRUGS (3)
  1. FOSAMAX [Suspect]
     Indication: OSTEOPOROSIS
     Dosage: 70 MG, UNK
     Route: 048
     Dates: start: 2003, end: 201102
  2. ALENDRONATE SODIUM [Suspect]
     Indication: OSTEOPOROSIS
     Dosage: 70 MG, UNK
     Route: 048
     Dates: start: 2009, end: 201107
  3. PREDNISONE [Concomitant]
     Indication: ASTHMA
     Dosage: UNK
     Dates: start: 1985

REACTIONS (46)
  - Intramedullary rod insertion [Unknown]
  - Femur fracture [Unknown]
  - Intramedullary rod insertion [Unknown]
  - Cerebrovascular accident [Unknown]
  - Myocardial infarction [Unknown]
  - Meningioma [Unknown]
  - Ataxia [Unknown]
  - Spinal laminectomy [Unknown]
  - Partial lung resection [Unknown]
  - Pulmonary granuloma [Unknown]
  - Spinal laminectomy [Unknown]
  - Lacunar infarction [Unknown]
  - Anaemia [Unknown]
  - Femur fracture [Unknown]
  - Vertigo [Unknown]
  - Low turnover osteopathy [Unknown]
  - Vitamin D deficiency [Recovered/Resolved]
  - Pain [Unknown]
  - Sinusitis [Unknown]
  - Rib fracture [Unknown]
  - Osteoma [Unknown]
  - High frequency ablation [Unknown]
  - Avulsion fracture [Unknown]
  - Spinal osteoarthritis [Unknown]
  - Coronary artery disease [Unknown]
  - Type 2 diabetes mellitus [Unknown]
  - Hyperlipidaemia [Unknown]
  - Chronic obstructive pulmonary disease [Unknown]
  - Depression [Unknown]
  - Arthritis [Unknown]
  - Osteopenia [Unknown]
  - Haemorrhoids [Unknown]
  - Anxiety [Unknown]
  - Asthma [Unknown]
  - Lumbar spinal stenosis [Unknown]
  - Haemorrhoidal haemorrhage [Unknown]
  - Haemorrhoid operation [Unknown]
  - Anaemia postoperative [Unknown]
  - Monoclonal gammopathy [Unknown]
  - Carotid artery stenosis [Unknown]
  - Cataract operation [Unknown]
  - Hysterectomy [Unknown]
  - Oophorectomy bilateral [Unknown]
  - Spondylolisthesis [Unknown]
  - Spinal compression fracture [Unknown]
  - Pain in extremity [Unknown]
